FAERS Safety Report 5928685-9 (Version None)
Quarter: 2008Q4

REPORT INFORMATION
  Report Type: 
  Country: None (occurrence: None)
  Receive Date: 20081023
  Receipt Date: 20081015
  Transmission Date: 20090506
  Serious: Yes (Hospitalization, Other)
  Sender: FDA-Public Use
  Company Number: US-AMGEN-QUU274458

PATIENT
  Sex: Female
  Weight: 89.9 kg

DRUGS (16)
  1. ENBREL [Suspect]
     Indication: RHEUMATOID ARTHRITIS
     Route: 058
     Dates: start: 20060211
  2. METHOTREXATE [Concomitant]
     Dates: start: 20020101
  3. PREDNISONE TAB [Concomitant]
  4. FOLIC ACID [Concomitant]
     Route: 048
  5. NAPROXEN [Concomitant]
  6. PREMPRO [Concomitant]
  7. ZOLOFT [Concomitant]
  8. MULTI-VITAMINS [Concomitant]
     Route: 048
  9. LORATADINE [Concomitant]
  10. LISINOPRIL [Concomitant]
  11. CLONAZEPAM [Concomitant]
  12. WELLBUTRIN [Concomitant]
  13. CALCIUM [Concomitant]
  14. VITAMIN E [Concomitant]
  15. ASCORBIC ACID [Concomitant]
  16. ACETAMINOPHEN [Concomitant]

REACTIONS (33)
  - ABDOMINAL PAIN LOWER [None]
  - ARTHRALGIA [None]
  - BACK PAIN [None]
  - BLINDNESS [None]
  - CHOLELITHIASIS [None]
  - CONJUNCTIVITIS VIRAL [None]
  - CONSTIPATION [None]
  - CONTUSION [None]
  - COUGH [None]
  - DEPRESSION [None]
  - DIARRHOEA [None]
  - DRY MOUTH [None]
  - DYSPEPSIA [None]
  - FALL [None]
  - FATIGUE [None]
  - GALLBLADDER PAIN [None]
  - HEADACHE [None]
  - INCREASED TENDENCY TO BRUISE [None]
  - INJECTION SITE ERYTHEMA [None]
  - INJECTION SITE PRURITUS [None]
  - INJECTION SITE URTICARIA [None]
  - JOINT SWELLING [None]
  - MUSCULOSKELETAL STIFFNESS [None]
  - NASAL DRYNESS [None]
  - OSTEOARTHRITIS [None]
  - OSTEOPENIA [None]
  - RENAL FAILURE [None]
  - RESTLESS LEGS SYNDROME [None]
  - RHEUMATOID ARTHRITIS [None]
  - RHINITIS SEASONAL [None]
  - SINUSITIS [None]
  - STOMATITIS [None]
  - SYNOVITIS [None]
